FAERS Safety Report 15792060 (Version 2)
Quarter: 2019Q1

REPORT INFORMATION
  Report Type: Report from Study
  Country: IT (occurrence: IT)
  Receive Date: 20190106
  Receipt Date: 20190121
  Transmission Date: 20190417
  Serious: No
  Sender: FDA-Public Use
  Company Number: IT-CELLTRION INC.-2018IT018095

PATIENT

DRUGS (3)
  1. SALAZOPYRIN [Concomitant]
     Active Substance: SULFASALAZINE
     Indication: CROHN^S DISEASE
     Dosage: UNK
     Route: 048
     Dates: start: 20150901, end: 20170704
  2. INFLECTRA [Suspect]
     Active Substance: INFLIXIMAB-DYYB
     Indication: INFLAMMATORY BOWEL DISEASE
     Dosage: 455 MG, EVERY 8 WEEKS
     Route: 065
     Dates: start: 20150908
  3. SALAZOPYRIN [Concomitant]
     Active Substance: SULFASALAZINE
     Indication: ARTHRALGIA

REACTIONS (1)
  - No adverse event [Recovered/Resolved]

NARRATIVE: CASE EVENT DATE: 20170825
